FAERS Safety Report 6597750-8 (Version None)
Quarter: 2010Q1

REPORT INFORMATION
  Report Type: 
  Country: None (occurrence: None)
  Receive Date: 20100216
  Receipt Date: 20100118
  Transmission Date: 20100710
  Serious: Yes (Other)
  Sender: FDA-Public Use
  Company Number: DSA_42358_2010

PATIENT
  Sex: Female

DRUGS (1)
  1. WELLBUTRIN XL [Suspect]
     Indication: DRUG USE FOR UNKNOWN INDICATION
     Dosage: 150 MG TID, PRESCRIBED DOSE; 300 MG THREE TABLETS QD DISPENSED, ORAL
     Route: 048
     Dates: start: 20091201

REACTIONS (2)
  - CONVULSION [None]
  - SEROTONIN SYNDROME [None]
